FAERS Safety Report 5073307-5 (Version None)
Quarter: 2006Q3

REPORT INFORMATION
  Report Type: 
  Country: None (occurrence: None)
  Receive Date: 20060808
  Receipt Date: 20060731
  Transmission Date: 20061208
  Serious: Yes (Hospitalization, Other)
  Sender: FDA-Public Use
  Company Number: CA-BAYER-200613311GDS

PATIENT
  Age: 77 Year
  Sex: Male
  Weight: 61 kg

DRUGS (24)
  1. SORAFENIB [Suspect]
     Indication: HEPATIC NEOPLASM MALIGNANT
     Route: 048
     Dates: start: 20060516
  2. METFORMIN HYDROCHLORIDE [Concomitant]
     Indication: DIABETES MELLITUS
     Route: 065
     Dates: start: 20040601
  3. GLYBURIDE [Concomitant]
     Indication: DIABETES MELLITUS
     Route: 065
     Dates: start: 20040601
  4. LOSEC [Concomitant]
     Indication: PHARYNGOLARYNGEAL PAIN
     Route: 065
     Dates: start: 20040901
  5. CALCIUM WITH VITAMIN D [Concomitant]
     Indication: VITAMIN SUPPLEMENTATION
     Route: 065
     Dates: start: 19990701
  6. HIGH POTENCY MULTIVITAMIN [Concomitant]
     Indication: VITAMIN SUPPLEMENTATION
     Route: 065
     Dates: start: 19990701
  7. DIGOXIN [Concomitant]
     Indication: ATRIAL FIBRILLATION
     Route: 065
     Dates: start: 20060501
  8. DIGOXIN [Concomitant]
     Route: 065
     Dates: start: 19940701, end: 20060501
  9. POTASSIUM CHLORIDE [Concomitant]
     Indication: HYPERTENSION
     Route: 065
     Dates: start: 19940701
  10. AMILORIDE [Concomitant]
     Indication: DIURETIC THERAPY
     Route: 065
     Dates: start: 20060531, end: 20060602
  11. AMILORIDE [Concomitant]
     Route: 065
     Dates: start: 20040701
  12. FUROSEMIDE [Concomitant]
     Indication: DIURETIC THERAPY
     Route: 065
     Dates: start: 20060119, end: 20060501
  13. AMILZIDE [Concomitant]
     Indication: DIURETIC THERAPY
     Route: 065
     Dates: start: 20060602
  14. AVEENO BATH [Concomitant]
     Indication: PRURITUS GENERALISED
     Route: 061
     Dates: start: 20060607
  15. IMODIUM [Concomitant]
     Indication: DIARRHOEA
     Route: 065
     Dates: start: 20060713
  16. FLAMAZINE [Concomitant]
     Indication: INJURY
     Route: 065
     Dates: start: 20060310
  17. WARFARIN SODIUM [Concomitant]
     Indication: HYPERTENSIVE CARDIOMYOPATHY
     Route: 065
     Dates: start: 20060506
  18. WARFARIN SODIUM [Concomitant]
     Route: 065
     Dates: start: 20060330, end: 20060505
  19. DIOVAN [Concomitant]
     Indication: HYPERTENSION
     Route: 065
     Dates: start: 20030701
  20. NORVASC [Concomitant]
     Indication: HYPERTENSION
     Route: 065
     Dates: start: 20040701
  21. HYDRALAZINE HYDROCHLORIDE [Concomitant]
     Indication: DIURETIC THERAPY
     Route: 065
     Dates: start: 19990701
  22. GRAVOL TAB [Concomitant]
     Indication: NAUSEA
     Route: 065
     Dates: start: 20040701
  23. TAMSULOSIN HYDROCHLORIDE [Concomitant]
     Indication: BENIGN PROSTATIC HYPERPLASIA
     Route: 065
     Dates: start: 20050701
  24. ELECOM [Concomitant]
     Indication: CHILLS
     Route: 065

REACTIONS (1)
  - HYPOGLYCAEMIA [None]
